FAERS Safety Report 6109243-2 (Version None)
Quarter: 2009Q1

REPORT INFORMATION
  Report Type: 
  Country: None (occurrence: None)
  Receive Date: 20090306
  Receipt Date: 20090225
  Transmission Date: 20090719
  Serious: Yes (Other)
  Sender: FDA-Public Use
  Company Number: OSCN-NO-0604S-0101

PATIENT
  Age: 38 Year
  Sex: Female

DRUGS (1)
  1. OMNISCAN [Suspect]
     Indication: DRUG USE FOR UNKNOWN INDICATION
     Dosage: 22 ML, SINGLE DOSE, I.V.
     Route: 042
     Dates: start: 20050914, end: 20050914

REACTIONS (2)
  - ACTIVITIES OF DAILY LIVING IMPAIRED [None]
  - NEPHROGENIC SYSTEMIC FIBROSIS [None]
